FAERS Safety Report 5622401-6 (Version None)
Quarter: 2008Q1

REPORT INFORMATION
  Report Type: 
  Country: None (occurrence: None)
  Receive Date: 20080211
  Receipt Date: 20080131
  Transmission Date: 20080703
  Serious: Yes (Hospitalization)
  Sender: FDA-Public Use
  Company Number: FR-GILEAD-2007-0012325

PATIENT
  Sex: Male
  Weight: 74 kg

DRUGS (15)
  1. TRUVADA [Suspect]
     Indication: HIV INFECTION
     Route: 048
     Dates: start: 20070411
  2. SUSTIVA [Suspect]
     Indication: HIV INFECTION
     Route: 048
     Dates: start: 20070411
  3. SUSTIVA [Suspect]
     Route: 048
     Dates: start: 20070611
  4. RIFATER [Suspect]
     Indication: TUBERCULOSIS
     Route: 048
     Dates: start: 20070327, end: 20070529
  5. BACTRIM [Suspect]
     Indication: ANTIFUNGAL PROPHYLAXIS
     Route: 048
     Dates: start: 20070321, end: 20080128
  6. XANAX [Suspect]
     Route: 048
  7. RIMIFON [Concomitant]
     Indication: TUBERCULOSIS
     Route: 048
     Dates: start: 20070602
  8. PYRILENE [Concomitant]
     Indication: TUBERCULOSIS
     Dates: start: 20070601
  9. PYRILENE [Concomitant]
     Route: 048
     Dates: start: 20080126
  10. IZILOX [Concomitant]
     Indication: TUBERCULOSIS
     Route: 048
     Dates: start: 20070602
  11. UVEDOSE [Concomitant]
     Indication: VITAMIN D DEFICIENCY
     Route: 048
     Dates: start: 20071219
  12. UVEDOSE [Concomitant]
     Route: 048
  13. CACIT VIT D3 [Concomitant]
     Indication: VITAMIN D DEFICIENCY
     Route: 048
  14. STILNOX [Concomitant]
     Route: 048
  15. TRIFLUCAN [Concomitant]

REACTIONS (7)
  - ANAEMIA [None]
  - ASTHENIA [None]
  - HYPERBILIRUBINAEMIA [None]
  - HYPOALBUMINAEMIA [None]
  - IMMUNE RECONSTITUTION SYNDROME [None]
  - OEDEMA PERIPHERAL [None]
  - PLEURAL NEOPLASM [None]
